FAERS Safety Report 8142238 (Version 2)
Quarter: 2012Q4

REPORT INFORMATION
  Report Type: 
  Country: CN (occurrence: CN)
  Receive Date: 20110919
  Receipt Date: 20120905
  Transmission Date: 20130627
  Serious: Yes (Hospitalization)
  Sender: FDA-Public Use
  Company Number: CN-ASTRAZENECA-2011SE52129

PATIENT
  Age: 847 Month
  Sex: Female
  Weight: 55.8 kg

DRUGS (2)
  1. CRESTOR [Suspect]
     Indication: HYPERLIPIDAEMIA
     Route: 048
     Dates: start: 20110701, end: 20110801
  2. CRESTOR [Suspect]
     Indication: HYPERLIPASAEMIA
     Route: 048
     Dates: start: 20110701, end: 20110801

REACTIONS (1)
  - Hepatic enzyme increased [Recovered/Resolved]
